FAERS Safety Report 6881463-9 (Version None)
Quarter: 2010Q3

REPORT INFORMATION
  Report Type: 
  Country: None (occurrence: None)
  Receive Date: 20100728
  Receipt Date: 20100721
  Transmission Date: 20110219
  Serious: Yes (Hospitalization)
  Sender: FDA-Public Use
  Company Number: US-BRISTOL-MYERS SQUIBB COMPANY-15203557

PATIENT
  Age: 82 Year
  Sex: Female

DRUGS (9)
  1. COUMADIN [Suspect]
     Dates: start: 20100401
  2. VITAMIN D [Concomitant]
     Dosage: 1 DF 50000 UNITS
  3. CARDIZEM [Concomitant]
  4. DIOVAN [Concomitant]
  5. ALLOPURINOL [Concomitant]
  6. OMEPRAZOLE [Concomitant]
  7. HYDROCHLOROTHIAZIDE [Concomitant]
  8. KLOR-CON [Concomitant]
  9. COLCHICINE [Concomitant]

REACTIONS (2)
  - BLOOD PRESSURE INCREASED [None]
  - FEELING ABNORMAL [None]
